FAERS Safety Report 17210007 (Version 1)
Quarter: 2019Q4

REPORT INFORMATION
  Report Type: Report from Study
  Country: US (occurrence: US)
  Receive Date: 20191227
  Receipt Date: 20191227
  Transmission Date: 20200122
  Serious: No
  Sender: FDA-Public Use
  Company Number: NVSC2019US078491

PATIENT
  Sex: Male

DRUGS (1)
  1. AFINITOR [Suspect]
     Active Substance: EVEROLIMUS
     Indication: PARTIAL SEIZURES
     Dosage: 2 MG, QD
     Route: 048
     Dates: start: 20191127

REACTIONS (5)
  - Tremor [Unknown]
  - Fatigue [Unknown]
  - Rash [Unknown]
  - Decreased appetite [Unknown]
  - Pyrexia [Unknown]
